FAERS Safety Report 5598756-8 (Version None)
Quarter: 2008Q1

REPORT INFORMATION
  Report Type: 
  Country: None (occurrence: None)
  Receive Date: 20080122
  Receipt Date: 20080108
  Transmission Date: 20080703
  Serious: Yes (Life-Threatening, Hospitalization)
  Sender: FDA-Public Use
  Company Number: GB-BAUSCH-2008BL000063

PATIENT
  Age: 86 Year
  Sex: Female

DRUGS (12)
  1. PREDNISOLONE [Suspect]
     Indication: DRUG USE FOR UNKNOWN INDICATION
     Route: 048
     Dates: start: 20071212, end: 20071220
  2. DICLOFENAC [Suspect]
     Indication: DRUG USE FOR UNKNOWN INDICATION
     Route: 048
     Dates: start: 20071212, end: 20071220
  3. ASPIRIN [Suspect]
     Indication: DRUG USE FOR UNKNOWN INDICATION
     Route: 048
     Dates: end: 20071220
  4. DOXAZOSIN [Concomitant]
     Route: 048
     Dates: end: 20071220
  5. FUROSEMIDE [Concomitant]
     Route: 048
  6. ISOSORBIDE MONONITRATE [Concomitant]
     Route: 048
  7. LOSARTAN [Concomitant]
     Route: 048
  8. ALBUTEROL [Concomitant]
     Route: 045
  9. SERETIDE ^GLAXO WELLCOME^ [Concomitant]
     Route: 045
  10. SPIRONOLACTONE [Concomitant]
     Route: 048
  11. THEOPHYLLINE [Concomitant]
     Route: 048
  12. TIOTROPIUM BROMIDE [Concomitant]
     Route: 045

REACTIONS (2)
  - HAEMATEMESIS [None]
  - OESOPHAGITIS [None]
